FAERS Safety Report 4274616-X (Version None)
Quarter: 2004Q1

REPORT INFORMATION
  Report Type: 
  Country: None (occurrence: None)
  Receive Date: 20040120
  Receipt Date: 20040120
  Transmission Date: 20041129
  Serious: Yes (Death)
  Sender: FDA-Public Use
  Company Number: None

PATIENT
  Age: 67 Year
  Sex: Male
  Weight: 54.8852 kg

DRUGS (13)
  1. DOCETAXEL 80 MG AVENTIS [Suspect]
     Indication: LUNG NEOPLASM MALIGNANT
     Dosage: 35 MG M2 INTRAVENOUS
     Route: 042
     Dates: start: 20040114, end: 20040114
  2. CARBOPLATIN [Suspect]
     Indication: LUNG NEOPLASM MALIGNANT
     Dosage: 6 AUC INTRAVENOUS
     Route: 042
     Dates: start: 20040114, end: 20040114
  3. LISINOPRIL [Concomitant]
  4. PLAVIX [Concomitant]
  5. VIOXX [Concomitant]
  6. DARVOCET [Concomitant]
  7. OXYCONTIN [Concomitant]
  8. ASPIRIN [Concomitant]
  9. COMBIVENT [Concomitant]
  10. HALOPERIDOL [Concomitant]
  11. DOXEPIN [Concomitant]
  12. BENZTROPINE MESYLATE [Concomitant]
  13. DIPHENHYDRAMINE HCL [Concomitant]

REACTIONS (1)
  - DEATH [None]
